FAERS Safety Report 9429627 (Version 1)
Quarter: 2013Q3

REPORT INFORMATION
  Report Type: Report from Study
  Country: US (occurrence: US)
  Receive Date: 20130730
  Receipt Date: 20130730
  Transmission Date: 20140515
  Serious: No
  Sender: FDA-Public Use
  Company Number: US-ABBOTT-13P-163-1067675-00

PATIENT
  Sex: Female

DRUGS (5)
  1. NIASPAN (COATED) [Suspect]
     Indication: BLOOD CHOLESTEROL INCREASED
     Dates: start: 20130304, end: 20130318
  2. NIASPAN (COATED) [Suspect]
     Dates: start: 20130318, end: 20130320
  3. NIASPAN (COATED) [Suspect]
     Dates: start: 201303
  4. BYSTOLIC [Concomitant]
     Indication: PRODUCT USED FOR UNKNOWN INDICATION
  5. MAXIDE [Concomitant]
     Indication: PRODUCT USED FOR UNKNOWN INDICATION

REACTIONS (1)
  - Myalgia [Not Recovered/Not Resolved]
